FAERS Safety Report 18234708 (Version 3)
Quarter: 2021Q1

REPORT INFORMATION
  Report Type: Spontaneous
  Country: ES (occurrence: ES)
  Receive Date: 20200904
  Receipt Date: 20210309
  Transmission Date: 20210419
  Serious: Yes (Other)
  Sender: FDA-Public Use
  Company Number: ES-CELLTRION INC.-2020ES025893

PATIENT

DRUGS (22)
  1. PREDNISONE. [Concomitant]
     Active Substance: PREDNISONE
     Dosage: 60 MG, QD (MAX DOSE)
     Route: 048
  2. RITUXIMAB (UNKNOWN) [Suspect]
     Active Substance: RITUXIMAB
     Dosage: TWO I.V. DOSES OF 1 G/EVERY 2 WEEKS AND THEN EVERY 6 MONTHS
     Route: 042
  3. CYCLOPHOSPHAMIDE. [Concomitant]
     Active Substance: CYCLOPHOSPHAMIDE
     Dosage: 9 MG/KG, QW (9 MG/KG/I.V./WEEKLY)
     Route: 042
  4. PREDNISONE. [Concomitant]
     Active Substance: PREDNISONE
     Indication: OPTIC NEURITIS
     Dosage: 40 (10?61.5) MG/DAY
     Route: 048
  5. MYCOPHENOLATE MOFETIL. [Concomitant]
     Active Substance: MYCOPHENOLATE MOFETIL
     Indication: OPTIC NEURITIS
     Dosage: 760?2000 MG/P.O./DAY
     Route: 048
  6. MYCOPHENOLATE MOFETIL. [Concomitant]
     Active Substance: MYCOPHENOLATE MOFETIL
     Dosage: 2000 MG, QD (760?2000 MG/P.O./DAY)
     Route: 048
  7. PREDNISONE. [Concomitant]
     Active Substance: PREDNISONE
     Dosage: 40 MG, QD (10?61.5) MG/DAY)
     Route: 048
  8. RITUXIMAB (UNKNOWN) [Suspect]
     Active Substance: RITUXIMAB
     Dosage: 1 G, Q2W (TWO I.V. DOSES OF 1 G/EVERY 2 WEEKS AND THEN EVERY 6 MONTHS)
     Route: 065
  9. CYCLOPHOSPHAMIDE. [Concomitant]
     Active Substance: CYCLOPHOSPHAMIDE
     Indication: OPTIC NEURITIS
     Dosage: 9 MG/KG/I.V./WEEKLY
     Route: 042
  10. PREDNISONE. [Concomitant]
     Active Substance: PREDNISONE
     Dosage: BEFORE BIOLOGIC INITIATION: MEAN MAX DOSE OF 53.7 +/? 17.7 MG/DAY
     Route: 048
  11. AZATHIOPRINE. [Concomitant]
     Active Substance: AZATHIOPRINE
     Dosage: 100 MG, QD (MAX DOSE)
     Route: 048
  12. LEFLUNOMIDE. [Concomitant]
     Active Substance: LEFLUNOMIDE
     Indication: OPTIC NEURITIS
     Dosage: 20 MG/P.O/DAY
     Route: 048
  13. PREDNISONE. [Concomitant]
     Active Substance: PREDNISONE
     Dosage: UNK (BEFORE BIOLOGIC INITIATION: MEAN MAX DOSE OF 53.7 +/? 17.7 MG/DAY)
     Route: 048
  14. AZATHIOPRINE. [Concomitant]
     Active Substance: AZATHIOPRINE
     Indication: OPTIC NEURITIS
     Dosage: 100?250 MG/P.O./DAY
     Route: 048
  15. AZATHIOPRINE. [Concomitant]
     Active Substance: AZATHIOPRINE
     Dosage: MAX DOSE (MG/P.O/DAY): 100
     Route: 048
  16. LEFLUNOMIDE. [Concomitant]
     Active Substance: LEFLUNOMIDE
     Dosage: 20 MG, QD (20 MG/P.O/DAY)
     Route: 048
  17. AZATHIOPRINE. [Concomitant]
     Active Substance: AZATHIOPRINE
     Dosage: 250 MG, QD (100?250 MG/P.O./DAY)
     Route: 048
  18. MYCOPHENOLATE MOFETIL. [Concomitant]
     Active Substance: MYCOPHENOLATE MOFETIL
     Dosage: MAX DOSE (MG/P.O/DAY): 1000
     Route: 048
  19. RITUXIMAB (UNKNOWN) [Suspect]
     Active Substance: RITUXIMAB
     Indication: OPTIC NEURITIS
     Dosage: TWO I.V. DOSES OF 1 G/EVERY 2 WEEKS AND THEN EVERY 6 MONTHS
     Route: 042
  20. RITUXIMAB (UNKNOWN) [Suspect]
     Active Substance: RITUXIMAB
     Dosage: UNK
     Route: 065
  21. PREDNISONE. [Concomitant]
     Active Substance: PREDNISONE
     Dosage: MAX DOSE (MG/DAY): 60
     Route: 048
  22. MYCOPHENOLATE MOFETIL. [Concomitant]
     Active Substance: MYCOPHENOLATE MOFETIL
     Dosage: 1000 MG, QD (MAX DOSE)
     Route: 048

REACTIONS (4)
  - Drug effective for unapproved indication [Unknown]
  - Infusion related reaction [Unknown]
  - Off label use [Unknown]
  - Product use in unapproved indication [Unknown]
